FAERS Safety Report 23381087 (Version 1)
Quarter: 2024Q1

REPORT INFORMATION
  Report Type: Spontaneous
  Country: GB (occurrence: GB)
  Receive Date: 20240109
  Receipt Date: 20240109
  Transmission Date: 20240410
  Serious: Yes (Life-Threatening, Other)
  Sender: FDA-Public Use
  Company Number: None

PATIENT
  Age: 60 Year
  Sex: Male
  Weight: 114 kg

DRUGS (5)
  1. PROMETHAZINE [Suspect]
     Active Substance: PROMETHAZINE HYDROCHLORIDE
     Indication: Insomnia
     Dosage: UNK, HS 25-50MG NOCTE (TABLET)
     Route: 065
     Dates: start: 20210202
  2. GABAPENTIN [Suspect]
     Active Substance: GABAPENTIN
     Indication: Neuralgia
     Dosage: 600 MILLIGRAM, BID (TABLET)
     Route: 065
     Dates: start: 20220211
  3. GABAPENTIN [Suspect]
     Active Substance: GABAPENTIN
     Dosage: UNK (REDUCED DOSE)
     Route: 065
  4. OXYCODONE HYDROCHLORIDE [Suspect]
     Active Substance: OXYCODONE HYDROCHLORIDE
     Indication: Pain
     Dosage: 120 MILLIGRAM, QD (40 MILLIGRAM, BID SR AND 10MG QDS IMMEDIATE RELEASE (TABLET))
     Route: 065
     Dates: start: 20160803
  5. OXYCODONE HYDROCHLORIDE [Suspect]
     Active Substance: OXYCODONE HYDROCHLORIDE
     Dosage: UNK (REDUCED DOSE)
     Route: 065

REACTIONS (4)
  - Breath holding [Unknown]
  - Hypopnoea [Unknown]
  - Respiratory depression [Recovering/Resolving]
  - Dyspnoea [Unknown]
